FAERS Safety Report 7342927-7 (Version None)
Quarter: 2011Q1

REPORT INFORMATION
  Report Type: 
  Country: None (occurrence: None)
  Receive Date: 20110310
  Receipt Date: 20110302
  Transmission Date: 20110831
  Serious: Yes (Death, Life-Threatening, Hospitalization)
  Sender: FDA-Public Use
  Company Number: US-GENZYME-FLUD-1000327

PATIENT
  Sex: Male
  Weight: 81 kg

DRUGS (14)
  1. RITUXAN [Suspect]
     Dosage: 375 MG/M2, UNK, EVERY 28 DAYS
     Route: 065
  2. FLUDARA [Suspect]
     Dosage: 25 MG/M2, QDX5 EVERY 28 DAYS
     Route: 065
  3. FLUDARA [Suspect]
     Indication: WALDENSTROM'S MACROGLOBULINAEMIA
     Dosage: 25 MG/M2, QDX5 EVERY 28 DAYS
     Route: 065
     Dates: start: 20040801, end: 20050201
  4. RITUXAN [Suspect]
     Dosage: 375 MG/M2, UNK, EVERY 28 DAYS
     Route: 065
  5. FLUDARA [Suspect]
     Dosage: 25 MG/M2, QDX5 EVERY 28 DAYS
     Route: 065
     Dates: end: 20050201
  6. FLUDARA [Suspect]
     Dosage: 25 MG/M2, QDX5 EVERY 28 DAYS
     Route: 065
  7. FLUDARA [Suspect]
     Dosage: 25 MG/M2, QDX5 EVERY 28 DAYS
     Route: 065
  8. RITUXAN [Suspect]
     Dosage: 375 MG/M2, UNK, EVERY 28 DAYS
     Route: 065
  9. RITUXAN [Suspect]
     Dosage: 375 MG/M2, UNK, EVERY 28 DAYS
     Route: 065
  10. TAMSULOSIN [Concomitant]
     Indication: PRODUCT USED FOR UNKNOWN INDICATION
     Dosage: 0.4 MG, QD
     Route: 065
  11. FOSAMAX [Concomitant]
     Indication: PRODUCT USED FOR UNKNOWN INDICATION
     Dosage: 70 MG, 1X/W
     Route: 065
  12. RITUXAN [Suspect]
     Indication: WALDENSTROM'S MACROGLOBULINAEMIA
     Dosage: 375 MG/M2, UNK, EVERY 28 DAYS
     Route: 065
     Dates: start: 20040801
  13. FLUDARA [Suspect]
     Dosage: 25 MG/M2, QDX5 EVERY 28 DAYS
     Route: 065
  14. RITUXAN [Suspect]
     Dosage: 375 MG/M2, UNK, EVERY 28 DAYS
     Route: 065
     Dates: end: 20050201

REACTIONS (2)
  - ACUTE MYELOID LEUKAEMIA [None]
  - REFRACTORY ANAEMIA WITH AN EXCESS OF BLASTS [None]
